FAERS Safety Report 10467132 (Version 5)
Quarter: 2015Q2

REPORT INFORMATION
  Report Type: Report from Study
  Country: US (occurrence: US)
  Receive Date: 20140922
  Receipt Date: 20150528
  Transmission Date: 20150821
  Serious: Yes (Other)
  Sender: FDA-Public Use
  Company Number: US-SA-2014SA125234

PATIENT
  Age: 63 Year
  Sex: Male

DRUGS (12)
  1. PROVENTIL [Concomitant]
     Active Substance: ALBUTEROL
  2. AUBAGIO [Suspect]
     Active Substance: TERIFLUNOMIDE
     Indication: MULTIPLE SCLEROSIS
     Route: 048
     Dates: start: 20140812, end: 201502
  3. TEGRETOL [Concomitant]
     Active Substance: CARBAMAZEPINE
  4. CARBAMAZEPINE. [Concomitant]
     Active Substance: CARBAMAZEPINE
  5. ATORVASTATIN CALCIUM. [Concomitant]
     Active Substance: ATORVASTATIN CALCIUM
  6. PREDNISONE. [Concomitant]
     Active Substance: PREDNISONE
  7. CLONIDINE. [Concomitant]
     Active Substance: CLONIDINE
  8. AUBAGIO [Suspect]
     Active Substance: TERIFLUNOMIDE
     Indication: MULTIPLE SCLEROSIS
     Route: 048
     Dates: start: 20140812, end: 201502
  9. VENTOLIN HFA [Concomitant]
     Active Substance: ALBUTEROL SULFATE
  10. METOPROLOL SUCCINATE. [Concomitant]
     Active Substance: METOPROLOL SUCCINATE
  11. DOXAZOSIN MESILATE [Concomitant]
     Active Substance: DOXAZOSIN MESYLATE
  12. DOXYCYCLINE HYCLATE. [Concomitant]
     Active Substance: DOXYCYCLINE HYCLATE

REACTIONS (10)
  - Condition aggravated [Unknown]
  - Central nervous system lesion [Unknown]
  - Contusion [Unknown]
  - Fatigue [Recovering/Resolving]
  - Balance disorder [Unknown]
  - Pain in extremity [Unknown]
  - Gait disturbance [Unknown]
  - Weight decreased [Unknown]
  - Blood pressure increased [Unknown]
  - Foot deformity [Unknown]
